FAERS Safety Report 8853403 (Version 1)
Quarter: 2012Q4

REPORT INFORMATION
  Report Type: 
  Country: US (occurrence: US)
  Receive Date: 20121022
  Receipt Date: 20121022
  Transmission Date: 20130627
  Serious: Yes (Other)
  Sender: FDA-Public Use
  Company Number: US-PFIZER INC-2012262408

PATIENT
  Age: 57 Year
  Sex: Male
  Weight: 132.88 kg

DRUGS (7)
  1. LYRICA [Suspect]
     Indication: PAIN
     Dosage: 50 mg, 1x/day
     Route: 048
     Dates: start: 200911
  2. LYRICA [Suspect]
     Dosage: 200 mg, 3x/day
     Route: 048
  3. AMLODIPINE [Concomitant]
     Dosage: 5 mg, 1x/day
  4. BENAZEPRIL [Concomitant]
     Dosage: 20 mg, 1x/day
  5. ALLOPURINOL [Concomitant]
     Indication: GOUT
     Dosage: 300 mg, 1x/day
  6. HYDROCHLOROTHIAZIDE [Concomitant]
     Dosage: 12.5 mg, 1x/day
  7. PRAVASTATIN [Concomitant]
     Indication: BLOOD CHOLESTEROL INCREASED
     Dosage: 40 mg, UNK

REACTIONS (5)
  - Diabetes mellitus [Unknown]
  - Depression [Unknown]
  - Renal disorder [Unknown]
  - Pain [Unknown]
  - Depression [Unknown]
